FAERS Safety Report 9197973 (Version 1)
Quarter: 2013Q1

REPORT INFORMATION
  Report Type: Spontaneous
  Country: US (occurrence: US)
  Receive Date: 20130328
  Receipt Date: 20130328
  Transmission Date: 20140127
  Serious: Yes (Hospitalization, Other)
  Sender: FDA-Public Use
  Company Number: CHPA2013US005174

PATIENT
  Age: 72 Year
  Sex: Female

DRUGS (13)
  1. EXCEDRIN EXTRA STRENGTH [Suspect]
     Indication: PROCEDURAL PAIN
     Dosage: UNK, AS DIRECTED
     Route: 048
  2. EXCEDRIN EXTRA STRENGTH [Suspect]
     Indication: ARTHROPATHY
  3. EXCEDRIN EXTRA STRENGTH [Suspect]
     Indication: PAIN
  4. CALCIUM [Concomitant]
     Dosage: UNK, UNK
  5. VIT B COMPLEX [Concomitant]
     Dosage: UNK, UNK
  6. HERBAL PREPARATION [Concomitant]
     Dosage: UNK, UNK
  7. COD LIVER OIL [Concomitant]
     Dosage: UNK, UNK
  8. FISH OIL [Concomitant]
     Dosage: UNK, UNK
  9. MAGNESIUM [Concomitant]
     Dosage: UNK, UNK
  10. ZINC [Concomitant]
     Dosage: UNK, UNK
  11. VIT D [Concomitant]
     Dosage: UNK, UNK
  12. ANTIGLAUCOMA PREPARATIONS AND MIOTICS [Concomitant]
     Dosage: UNK, UNK
  13. BAYER ASPIRIN [Concomitant]
     Indication: PAIN
     Dosage: UNK, UNK

REACTIONS (5)
  - Influenza [Recovered/Resolved]
  - Chest pain [Recovered/Resolved]
  - Body temperature increased [Recovered/Resolved]
  - Pneumonia [Recovered/Resolved]
  - Arthropathy [Recovered/Resolved]
